FAERS Safety Report 20734075 (Version 1)
Quarter: 2022Q2

REPORT INFORMATION
  Report Type: Report from Study
  Country: CA (occurrence: CA)
  Receive Date: 20220421
  Receipt Date: 20220421
  Transmission Date: 20220721
  Serious: Yes (Other)
  Sender: FDA-Public Use
  Company Number: CA-JNJFOC-20220325587

PATIENT
  Age: 16 Year
  Sex: Male
  Weight: 53 kg

DRUGS (3)
  1. REMICADE [Suspect]
     Active Substance: INFLIXIMAB
     Indication: Crohn^s disease
     Dosage: 1ST DOSE
     Route: 042
     Dates: start: 20220310
  2. REMICADE [Suspect]
     Active Substance: INFLIXIMAB
     Dosage: DOSE 2, 6 AND THEN EVERY 6 WEEKS
     Route: 042
  3. REMICADE [Suspect]
     Active Substance: INFLIXIMAB
     Dosage: STAT DOSE FOLLOWED BY EVERY 4 WEEKS
     Route: 042

REACTIONS (3)
  - Crohn^s disease [Unknown]
  - Off label use [Unknown]
  - Product use issue [Unknown]

NARRATIVE: CASE EVENT DATE: 20220310
